FAERS Safety Report 7468580-X (Version None)
Quarter: 2011Q2

REPORT INFORMATION
  Report Type: 
  Country: None (occurrence: None)
  Receive Date: 20110509
  Receipt Date: 20101222
  Transmission Date: 20111010
  Serious: No
  Sender: FDA-Public Use
  Company Number: US-BAYER-2010-008559

PATIENT
  Sex: Female

DRUGS (2)
  1. PREDNISONE TAB [Concomitant]
  2. AVELOX [Suspect]
     Indication: PRODUCT USED FOR UNKNOWN INDICATION
     Dosage: 400 MG, UNK
     Route: 048

REACTIONS (2)
  - ARTHRALGIA [None]
  - MYALGIA [None]
